FAERS Safety Report 11484153 (Version 1)
Quarter: 2015Q3

REPORT INFORMATION
  Report Type: Spontaneous
  Country: US (occurrence: US)
  Receive Date: 20150903
  Receipt Date: 20150903
  Transmission Date: 20151125
  Serious: No
  Sender: FDA-Public Use
  Company Number: US-ELI_LILLY_AND_COMPANY-US201206001681

PATIENT
  Age: 69 Year
  Sex: Female

DRUGS (1)
  1. CYMBALTA [Suspect]
     Active Substance: DULOXETINE HYDROCHLORIDE
     Indication: DIABETIC NEUROPATHY
     Dosage: 30MG, DAILY
     Dates: start: 20120530

REACTIONS (6)
  - Disturbance in attention [Unknown]
  - Eye pain [Unknown]
  - Crying [Unknown]
  - Dry eye [Unknown]
  - Feeling abnormal [Unknown]
  - Tremor [Unknown]
